FAERS Safety Report 9921248 (Version 1)
Quarter: 2014Q1

REPORT INFORMATION
  Report Type: Spontaneous
  Country: US (occurrence: None)
  Receive Date: 20140221
  Receipt Date: 20140221
  Transmission Date: 20141002
  Serious: Yes (Hospitalization)
  Sender: FDA-Public Use
  Company Number: None

PATIENT
  Age: 39 Year
  Sex: Male
  Weight: 134 kg

DRUGS (2)
  1. QUETIAPINE IR [Suspect]
     Indication: BIPOLAR DISORDER
     Dosage: BEGAN MED AUGUST 2013?
     Dates: start: 201308
  2. QUETIAPINE IR [Suspect]
     Indication: POST-TRAUMATIC STRESS DISORDER
     Dosage: BEGAN MED AUGUST 2013?
     Dates: start: 201308

REACTIONS (1)
  - Pancreatitis [None]
